FAERS Safety Report 6488975-0 (Version None)
Quarter: 2009Q4

REPORT INFORMATION
  Report Type: 
  Country: None (occurrence: None)
  Receive Date: 20091210
  Receipt Date: 20091002
  Transmission Date: 20100525
  Serious: No
  Sender: FDA-Public Use
  Company Number: US-AMGEN-KDL364675

PATIENT
  Sex: Female

DRUGS (5)
  1. ENBREL [Suspect]
     Indication: PSORIASIS
     Route: 058
     Dates: start: 20090701
  2. TAMOXIFEN CITRATE [Concomitant]
  3. WELLBUTRIN [Concomitant]
  4. ZOLOFT [Concomitant]
  5. VITAMIN D [Concomitant]

REACTIONS (6)
  - ARTHRALGIA [None]
  - DRUG INEFFECTIVE [None]
  - INJECTION SITE HAEMATOMA [None]
  - INJECTION SITE REACTION [None]
  - PSORIASIS [None]
  - RASH PRURITIC [None]
